FAERS Safety Report 6322342-5 (Version None)
Quarter: 2009Q3

REPORT INFORMATION
  Report Type: 
  Country: None (occurrence: None)
  Receive Date: 20090824
  Receipt Date: 20090211
  Transmission Date: 20100115
  Serious: No
  Sender: FDA-Public Use
  Company Number: US-ABBOTT-09P-163-0503147-00

PATIENT
  Sex: Male

DRUGS (16)
  1. NIASPAN [Suspect]
     Indication: BLOOD CHOLESTEROL INCREASED
     Route: 048
  2. RINOCORT [Concomitant]
     Indication: DRUG USE FOR UNKNOWN INDICATION
  3. ASTELIN [Concomitant]
     Indication: DRUG USE FOR UNKNOWN INDICATION
  4. POTASSIUM CHLORIDE [Concomitant]
     Indication: DRUG USE FOR UNKNOWN INDICATION
  5. FLOMAX [Concomitant]
     Indication: DRUG USE FOR UNKNOWN INDICATION
  6. DIOVAN HCT [Concomitant]
     Indication: DRUG USE FOR UNKNOWN INDICATION
     Dosage: 320/12.5 DAILY
  7. AMLODIPINE [Concomitant]
     Indication: DRUG USE FOR UNKNOWN INDICATION
  8. FOLIC ACID [Concomitant]
     Indication: DRUG USE FOR UNKNOWN INDICATION
  9. ASPIRIN [Concomitant]
     Indication: DRUG USE FOR UNKNOWN INDICATION
  10. VIT C [Concomitant]
     Indication: DRUG USE FOR UNKNOWN INDICATION
  11. VITAMIN D3 [Concomitant]
     Indication: DRUG USE FOR UNKNOWN INDICATION
  12. LASIX [Concomitant]
     Indication: DRUG USE FOR UNKNOWN INDICATION
  13. NEXIUM [Concomitant]
     Indication: DRUG USE FOR UNKNOWN INDICATION
  14. OMEGA 3 FISH [Concomitant]
     Indication: DRUG USE FOR UNKNOWN INDICATION
  15. GARLIC [Concomitant]
     Indication: DRUG USE FOR UNKNOWN INDICATION
  16. VITAMIN B-12 [Concomitant]
     Indication: DRUG USE FOR UNKNOWN INDICATION

REACTIONS (2)
  - ERYTHEMA [None]
  - FLUSHING [None]
